FAERS Safety Report 24595564 (Version 1)
Quarter: 2024Q4

REPORT INFORMATION
  Report Type: Report from Study
  Country: EG (occurrence: EG)
  Receive Date: 20241109
  Receipt Date: 20241109
  Transmission Date: 20250115
  Serious: Yes (Hospitalization, Other)
  Sender: ABBVIE
  Company Number: EG-ABBVIE-5991742

PATIENT
  Age: 41 Year
  Sex: Female

DRUGS (2)
  1. RINVOQ [Suspect]
     Active Substance: UPADACITINIB
     Indication: Rheumatoid arthritis
     Dosage: 1 TABLET,?FORM STRENGTH: 15 MILLIGRAM
     Route: 048
     Dates: start: 202410
  2. RINVOQ [Suspect]
     Active Substance: UPADACITINIB
     Indication: Rheumatoid arthritis
     Dosage: 1 TABLET,?FORM STRENGTH: 15 MILLIGRAM
     Route: 048
     Dates: start: 20231114, end: 202408

REACTIONS (1)
  - Idiopathic intracranial hypertension [Recovered/Resolved]

NARRATIVE: CASE EVENT DATE: 20240801
